FAERS Safety Report 5804222-4 (Version None)
Quarter: 2008Q3

REPORT INFORMATION
  Report Type: 
  Country: None (occurrence: None)
  Receive Date: 20080709
  Receipt Date: 20080623
  Transmission Date: 20090109
  Serious: Yes (Other)
  Sender: FDA-Public Use
  Company Number: PHHY2008BR12048

PATIENT
  Sex: Female

DRUGS (3)
  1. CODATEN [Suspect]
     Indication: TENDONITIS
     Dosage: 1 TABLET EVERY 8 HOURS
     Route: 048
     Dates: start: 20080530, end: 20080604
  2. CODATEN [Suspect]
     Indication: MUSCULOSKELETAL DISORDER
  3. MIOSAN [Concomitant]
     Indication: TENDONITIS
     Dosage: UNK
     Route: 048
     Dates: start: 20080530, end: 20080604

REACTIONS (3)
  - CONSTIPATION [None]
  - HAEMORRHAGE [None]
  - HAEMORRHOIDS [None]
